FAERS Safety Report 7835964-7 (Version None)
Quarter: 2011Q4

REPORT INFORMATION
  Report Type: 
  Country: None (occurrence: None)
  Receive Date: 20111024
  Receipt Date: 20110303
  Transmission Date: 20120403
  Serious: No
  Sender: FDA-Public Use
  Company Number: US-ABBOTT-10P-163-0660912-00

PATIENT
  Sex: Female

DRUGS (4)
  1. LUPRON DEPOT [Suspect]
     Indication: PRODUCT USED FOR UNKNOWN INDICATION
  2. PREDNISONE [Concomitant]
     Indication: PRODUCT USED FOR UNKNOWN INDICATION
  3. BCP PILL [Concomitant]
     Indication: PRODUCT USED FOR UNKNOWN INDICATION
  4. LABETALOL HCL [Concomitant]
     Indication: PRODUCT USED FOR UNKNOWN INDICATION

REACTIONS (5)
  - HYPOTENSION [None]
  - POOR QUALITY SLEEP [None]
  - DEPRESSED MOOD [None]
  - HOT FLUSH [None]
  - HEADACHE [None]
